FAERS Safety Report 14446940 (Version 1)
Quarter: 2018Q1

REPORT INFORMATION
  Report Type: Spontaneous
  Country: US (occurrence: US)
  Receive Date: 20180126
  Receipt Date: 20180126
  Transmission Date: 20180509
  Serious: No
  Sender: FDA-Public Use
  Company Number: US-GLAXOSMITHKLINE-US2018013112

PATIENT
  Age: 83 Year
  Sex: Female

DRUGS (2)
  1. ADVAIR DISKUS [Suspect]
     Active Substance: FLUTICASONE PROPIONATE\SALMETEROL XINAFOATE
     Dosage: 1 PUFF(S), BID (250/50 UG)
     Route: 055
  2. ADVAIR DISKUS [Suspect]
     Active Substance: FLUTICASONE PROPIONATE\SALMETEROL XINAFOATE
     Indication: ASTHMA
     Dosage: 1 PUFF(S), BID (500/50 UG)
     Route: 055
     Dates: start: 201712, end: 201801

REACTIONS (9)
  - Dental caries [Not Recovered/Not Resolved]
  - Tooth loss [Unknown]
  - Fall [Unknown]
  - Dyspnoea [Unknown]
  - Tongue injury [Unknown]
  - Intentional underdose [Unknown]
  - Dental operation [Unknown]
  - Upper limb fracture [Unknown]
  - Drug dose omission [Not Recovered/Not Resolved]

NARRATIVE: CASE EVENT DATE: 2017
